FAERS Safety Report 6539892-9 (Version None)
Quarter: 2010Q1

REPORT INFORMATION
  Report Type: 
  Country: None (occurrence: None)
  Receive Date: 20100113
  Receipt Date: 20090505
  Transmission Date: 20100710
  Serious: Yes (Hospitalization, Other)
  Sender: FDA-Public Use
  Company Number: 2009192970

PATIENT
  Age: 61 Year
  Sex: Female
  Weight: 65.8 kg

DRUGS (2)
  1. DIFLUCAN [Suspect]
     Dosage: 200 MG, 1X/DAY ; 100 MG, 1X/DAY
     Dates: start: 20081201, end: 20081201
  2. DIFLUCAN [Suspect]
     Dosage: 200 MG, 1X/DAY ; 100 MG, 1X/DAY
     Dates: start: 20081201, end: 20081201

REACTIONS (4)
  - BLOOD CHOLESTEROL INCREASED [None]
  - BLOOD PRESSURE ABNORMAL [None]
  - RASH [None]
  - STEVENS-JOHNSON SYNDROME [None]
